FAERS Safety Report 15378251 (Version 2)
Quarter: 2018Q4

REPORT INFORMATION
  Report Type: Report from Study
  Country: DE (occurrence: DE)
  Receive Date: 20180913
  Receipt Date: 20181005
  Transmission Date: 20190204
  Serious: Yes (Other)
  Sender: FDA-Public Use
  Company Number: DE-TEVA-2017-DE-830292

PATIENT
  Age: 73 Year
  Sex: Male
  Weight: 94 kg

DRUGS (2)
  1. NINTEDANIB [Suspect]
     Active Substance: NINTEDANIB
     Indication: LUNG ADENOCARCINOMA
     Dosage: 200 MILLIGRAM DAILY;
     Route: 048
     Dates: start: 20170328
  2. DOCETAXEL. [Suspect]
     Active Substance: DOCETAXEL
     Indication: LUNG ADENOCARCINOMA
     Dosage: LIQUID?60 MG/ME2
     Route: 042
     Dates: start: 20170327

REACTIONS (18)
  - Rhinorrhoea [Recovered/Resolved]
  - Paronychia [Recovered/Resolved]
  - Face oedema [Recovered/Resolved]
  - White blood cell count decreased [Recovered/Resolved]
  - Thrombocytopenia [Recovered/Resolved]
  - White blood cell count decreased [Recovered/Resolved]
  - Diarrhoea [Recovered/Resolved]
  - Platelet count decreased [Recovered/Resolved]
  - White blood cell count decreased [Recovered/Resolved]
  - Stomatitis [Recovered/Resolved]
  - White blood cell count decreased [Recovered/Resolved]
  - Nausea [Recovered/Resolved]
  - White blood cell count decreased [Recovered/Resolved]
  - White blood cell count decreased [Recovered/Resolved]
  - Erythema [Recovered/Resolved]
  - Lacrimation increased [Recovered/Resolved]
  - Fatigue [Recovered/Resolved]
  - White blood cell count decreased [Recovered/Resolved]

NARRATIVE: CASE EVENT DATE: 20170502
